FAERS Safety Report 6299108-8 (Version None)
Quarter: 2009Q3

REPORT INFORMATION
  Report Type: 
  Country: None (occurrence: None)
  Receive Date: 20090806
  Receipt Date: 20070907
  Transmission Date: 20100115
  Serious: Yes (Other)
  Sender: FDA-Public Use
  Company Number: US-ASTRAZENECA-2006UW11354

PATIENT
  Age: 12620 Day
  Sex: Male
  Weight: 120.7 kg

DRUGS (13)
  1. SEROQUEL [Suspect]
     Indication: BIPOLAR DISORDER
     Route: 048
     Dates: start: 20040702, end: 20050801
  2. SEROQUEL [Suspect]
     Indication: DEPRESSION
     Route: 048
     Dates: start: 20040702, end: 20050801
  3. SEROQUEL [Suspect]
     Dosage: 200-800 MG
     Route: 048
     Dates: start: 20050509, end: 20060321
  4. SEROQUEL [Suspect]
     Dosage: 200-800 MG
     Route: 048
     Dates: start: 20050509, end: 20060321
  5. ABILIFY (ARIPIPARAZOLE) [Concomitant]
     Dates: start: 20060801
  6. NEURONTIN [Concomitant]
     Dates: start: 20050509
  7. CARBAMAZEPINE [Concomitant]
     Dosage: 200 MG,1/2 TAB Q A.M AND 1/2 Q.H.S
     Dates: start: 20050509
  8. LEXAPRO [Concomitant]
     Dates: start: 20050509
  9. ATIVAN [Concomitant]
     Dosage: 6-12 MG
     Dates: start: 20051107
  10. LAMICTAL [Concomitant]
     Dosage: 25-200 MG
     Dates: start: 20060321
  11. REQUIP [Concomitant]
     Indication: LIMB DISCOMFORT
     Dosage: 1-2 MG
     Route: 048
     Dates: start: 20051107
  12. EFFEXOR [Concomitant]
     Dates: start: 20060123
  13. LUNESTA [Concomitant]
     Dates: start: 20051107

REACTIONS (4)
  - DIABETES MELLITUS [None]
  - DIABETIC NEUROPATHY [None]
  - GLUCOSE TOLERANCE IMPAIRED [None]
  - TYPE 2 DIABETES MELLITUS [None]
